FAERS Safety Report 11592500 (Version 5)
Quarter: 2017Q4

REPORT INFORMATION
  Report Type: Report from Study
  Country: FR (occurrence: FR)
  Receive Date: 20151005
  Receipt Date: 20171028
  Transmission Date: 20180320
  Serious: Yes (Other)
  Sender: FDA-Public Use
  Company Number: FR-ROCHE-1641641

PATIENT
  Age: 23 Year
  Sex: Female
  Weight: 60 kg

DRUGS (10)
  1. VEMURAFENIB. [Suspect]
     Active Substance: VEMURAFENIB
     Indication: ASTROCYTOMA
  2. TRILEPTAL [Concomitant]
     Active Substance: OXCARBAZEPINE
     Route: 065
  3. LUDEAL [Concomitant]
     Active Substance: ETHINYL ESTRADIOL\LEVONORGESTREL
     Route: 065
  4. TRILEPTAL [Concomitant]
     Active Substance: OXCARBAZEPINE
     Indication: EPILEPSY
     Route: 048
     Dates: start: 20051109
  5. TRILEPTAL [Concomitant]
     Active Substance: OXCARBAZEPINE
     Dosage: 450 MG IN THE MORNING AND 300 MG IN THE EVENING
     Route: 065
     Dates: start: 20151005
  6. LEVOTHYROX [Concomitant]
     Active Substance: LEVOTHYROXINE
     Indication: HYPOTHYROIDISM
     Route: 048
     Dates: start: 20140428
  7. MINIDRIL [Concomitant]
     Active Substance: ETHINYL ESTRADIOL\LEVONORGESTREL
     Indication: CONTRACEPTION
     Route: 048
     Dates: start: 20140917
  8. VEMURAFENIB. [Suspect]
     Active Substance: VEMURAFENIB
     Indication: NEOPLASM MALIGNANT
     Dosage: DATE OF LAST DOSE ADMINISTERED: 29/SEP/2015?LAST DOSE ADMINISTERED: 1920 MG?FREQUENCY: 85 DAYS WITHO
     Route: 048
     Dates: start: 20150707
  9. KERATOSANE [Concomitant]
     Indication: HYPERKERATOSIS
     Dosage: 30 DAILY (URIAGE)
     Route: 003
     Dates: start: 20150805
  10. ERIVEDGE [Concomitant]
     Active Substance: VISMODEGIB
     Route: 065
     Dates: start: 20150707

REACTIONS (1)
  - Hypercholesterolaemia [Recovered/Resolved]

NARRATIVE: CASE EVENT DATE: 20150929
